FAERS Safety Report 10193029 (Version 1)
Quarter: 2014Q2

REPORT INFORMATION
  Report Type: Spontaneous
  Country: CA (occurrence: CA)
  Receive Date: 20140524
  Receipt Date: 20140524
  Transmission Date: 20141212
  Serious: Yes (Hospitalization, Other)
  Sender: FDA-Public Use
  Company Number: CA-AMGEN-CANSP2014036756

PATIENT
  Age: 69 Year
  Sex: Female

DRUGS (3)
  1. PROLIA [Suspect]
     Indication: OSTEOPOROSIS POSTMENOPAUSAL
     Dosage: 60 MG, UNK
     Route: 065
     Dates: start: 20121107
  2. CALCIUM [Concomitant]
  3. VITAMIN D                          /00107901/ [Concomitant]

REACTIONS (8)
  - Sepsis [Unknown]
  - Mobility decreased [Unknown]
  - Osteomyelitis [Unknown]
  - Device related infection [Unknown]
  - Impaired healing [Unknown]
  - Malaise [Unknown]
  - Arrhythmia [Unknown]
  - Fall [Unknown]
